FAERS Safety Report 12799829 (Version 2)
Quarter: 2016Q4

REPORT INFORMATION
  Report Type: Spontaneous
  Country: US (occurrence: US)
  Receive Date: 20160930
  Receipt Date: 20161014
  Transmission Date: 20170207
  Serious: No
  Sender: FDA-Public Use
  Company Number: US-VERTEX PHARMACEUTICALS-2016-005579

PATIENT
  Sex: Male

DRUGS (2)
  1. ANALGESIC [Suspect]
     Active Substance: UNSPECIFIED INGREDIENT
     Route: 065
  2. ORKAMBI [Suspect]
     Active Substance: IVACAFTOR\LUMACAFTOR
     Indication: CYSTIC FIBROSIS
     Dosage: 2 DF, BID
     Route: 048
     Dates: start: 20151019

REACTIONS (2)
  - Hypersomnia [Unknown]
  - Hernia [Unknown]

NARRATIVE: CASE EVENT DATE: 2016
